FAERS Safety Report 8200725-6 (Version None)
Quarter: 2012Q1

REPORT INFORMATION
  Report Type: 
  Country: None (occurrence: None)
  Receive Date: 20120312
  Receipt Date: 20120227
  Transmission Date: 20120608
  Serious: Yes (Hospitalization, Other)
  Sender: FDA-Public Use
  Company Number: US-ELI_LILLY_AND_COMPANY-US201202002303

PATIENT
  Sex: Female
  Weight: 60.771 kg

DRUGS (11)
  1. LANTUS [Concomitant]
     Dosage: UNK
  2. PLAVIX [Concomitant]
     Dosage: 75 DF, QD
  3. ZESTRIL [Concomitant]
     Dosage: 5 DF, QD
     Dates: start: 20110801
  4. HUMALOG [Suspect]
     Dosage: UNK, PRN
     Dates: start: 20020101
  5. LANTUS [Concomitant]
     Dosage: 7 U, BID
  6. ZOCOR [Concomitant]
     Dosage: 40 U, QD
     Dates: start: 20110801
  7. TRAMADOL HCL [Concomitant]
     Dosage: UNK, PRN
  8. HUMALOG [Suspect]
     Indication: DIABETES MELLITUS
     Dosage: UNK UNK, PRN
     Dates: start: 20020101
  9. LANTUS [Concomitant]
     Dosage: 15 U, EACH EVENING
  10. ASPIRIN [Concomitant]
     Dosage: 81 DF, QD
  11. VITAMIN B-12 [Concomitant]
     Dosage: 1000 DF, QD

REACTIONS (13)
  - CATARACT [None]
  - DRY SKIN [None]
  - TRANSIENT ISCHAEMIC ATTACK [None]
  - RASH [None]
  - DIABETIC KETOACIDOSIS [None]
  - HIP FRACTURE [None]
  - FALL [None]
  - HEMIPARESIS [None]
  - BLOOD GLUCOSE INCREASED [None]
  - HYPOGLYCAEMIC UNCONSCIOUSNESS [None]
  - CEREBROVASCULAR ACCIDENT [None]
  - BLOOD GLUCOSE DECREASED [None]
  - GLYCOSYLATED HAEMOGLOBIN INCREASED [None]
